FAERS Safety Report 9473615 (Version 2)
Quarter: 2013Q3

REPORT INFORMATION
  Report Type: Spontaneous
  Country: US (occurrence: US)
  Receive Date: 20130823
  Receipt Date: 20130823
  Transmission Date: 20140515
  Serious: No
  Sender: FDA-Public Use
  Company Number: US-BRISTOL-MYERS SQUIBB COMPANY-16710311

PATIENT
  Age: 74 Year
  Sex: Male

DRUGS (14)
  1. SPRYCEL [Suspect]
     Indication: CHRONIC MYELOID LEUKAEMIA
     Dosage: INTD-UNK,5MY10-13JUN12,?RESTD 4JUL12-100MG QOD?INTD-2WKS?RESD 4JL12-BID?27JL12-75MG?70MG-1IN1D
     Route: 048
     Dates: start: 20100505
  2. ASPIRIN [Concomitant]
     Route: 048
  3. BYSTOLIC [Concomitant]
     Route: 048
  4. CLONIDINE [Concomitant]
     Route: 048
  5. DIOVAN [Concomitant]
  6. DUONEB [Concomitant]
     Route: 045
  7. GLIMEPIRIDE [Concomitant]
  8. INTEGRA PLUS [Concomitant]
     Dosage: TABS
     Route: 048
  9. LASIX [Concomitant]
     Route: 048
  10. PERCOCET [Concomitant]
     Indication: PAIN
     Dosage: 1DF= 1 TAB
     Route: 048
  11. POTASSIUM CHLORIDE [Concomitant]
     Route: 048
  12. PROCARDIA [Concomitant]
     Dosage: TABS
     Route: 048
  13. SIMVASTATIN [Concomitant]
     Route: 048
  14. TRAMADOL [Concomitant]
     Dosage: TABS
     Route: 048

REACTIONS (3)
  - Weight decreased [Recovered/Resolved]
  - Depression [Recovered/Resolved]
  - Confusional state [Recovered/Resolved]
